FAERS Safety Report 10760931 (Version 1)
Quarter: 2015Q1

REPORT INFORMATION
  Report Type: Spontaneous
  Country: JP (occurrence: None)
  Receive Date: 20150202
  Receipt Date: 20150202
  Transmission Date: 20150721
  Serious: Yes (Hospitalization)
  Sender: FDA-Public Use
  Company Number: 2014FE03392

PATIENT
  Age: 72 Year
  Sex: Male
  Weight: 58 kg

DRUGS (6)
  1. BROTIZOLAM (BROTIZOLAM) [Concomitant]
  2. RANMARK [Suspect]
     Active Substance: DENOSUMAB
     Indication: METASTASES TO BONE
     Route: 058
     Dates: start: 20140917
  3. ASPARA-CA (ASPARTATE CALCIUM) [Concomitant]
  4. CASODEX [Concomitant]
     Active Substance: BICALUTAMIDE
  5. ALFAROL [Concomitant]
     Active Substance: ALFACALCIDOL
  6. GONAX (DEGARELIX) POWDER AND SOLVENT FOR SOLUTION FOR INJECTION, 80MG [Suspect]
     Active Substance: DEGARELIX
     Indication: PROSTATE CANCER
     Route: 058
     Dates: start: 20140917

REACTIONS (3)
  - Intentional product use issue [None]
  - Interstitial lung disease [None]
  - Intentional product misuse [None]

NARRATIVE: CASE EVENT DATE: 20140917
